FAERS Safety Report 8986536 (Version 1)
Quarter: 2012Q4

REPORT INFORMATION
  Report Type: 
  Country: US (occurrence: US)
  Receive Date: 20121226
  Receipt Date: 20121226
  Transmission Date: 20130627
  Serious: Yes (Life-Threatening, Hospitalization)
  Sender: FDA-Public Use
  Company Number: US-MYLANLABS-2012S1025978

PATIENT
  Age: 40 Year
  Sex: Male
  Weight: 65 kg

DRUGS (7)
  1. VANCOMYCIN [Suspect]
     Indication: STAPHYLOCOCCAL INFECTION
     Route: 065
  2. VANCOMYCIN [Suspect]
     Indication: STAPHYLOCOCCAL INFECTION
     Route: 042
  3. RIFAMPICIN [Suspect]
     Indication: STAPHYLOCOCCAL INFECTION
     Dosage: 600mg daily
     Route: 065
  4. DOXYCYCLINE [Concomitant]
     Indication: STAPHYLOCOCCAL INFECTION
     Route: 048
  5. GENTAMICIN [Concomitant]
     Indication: STAPHYLOCOCCAL INFECTION
     Route: 065
  6. CEFEPIME [Concomitant]
     Indication: STAPHYLOCOCCAL INFECTION
     Route: 065
  7. IMIPENEM [Concomitant]
     Indication: STAPHYLOCOCCAL INFECTION
     Route: 065

REACTIONS (1)
  - Drug resistance [Recovered/Resolved]
